FAERS Safety Report 18096129 (Version 2)
Quarter: 2021Q4

REPORT INFORMATION
  Report Type: Spontaneous
  Country: US (occurrence: US)
  Receive Date: 20200731
  Receipt Date: 20211111
  Transmission Date: 20220303
  Serious: Yes (Hospitalization, Other)
  Sender: FDA-Public Use
  Company Number: US-SHIRE-US202024340

PATIENT
  Age: 73 Year
  Sex: Male

DRUGS (6)
  1. NATPARA (PARATHYROID HORMONE) [Suspect]
     Active Substance: PARATHYROID HORMONE
     Indication: Hypoparathyroidism
     Dosage: 75 MICROGRAM, UNKNOWN
     Route: 058
     Dates: start: 201905
  2. NATPARA (PARATHYROID HORMONE) [Suspect]
     Active Substance: PARATHYROID HORMONE
     Indication: Hypoparathyroidism
     Dosage: 75 MICROGRAM, UNKNOWN
     Route: 058
     Dates: start: 201905
  3. NATPARA (PARATHYROID HORMONE) [Suspect]
     Active Substance: PARATHYROID HORMONE
     Indication: Hypoparathyroidism
     Dosage: 75 MICROGRAM, UNKNOWN
     Route: 058
     Dates: start: 201905
  4. NATPARA (PARATHYROID HORMONE) [Suspect]
     Active Substance: PARATHYROID HORMONE
     Indication: Blood calcium decreased
     Dosage: 50 INTERNATIONAL UNIT, QD
     Route: 065
     Dates: start: 201905
  5. NATPARA (PARATHYROID HORMONE) [Suspect]
     Active Substance: PARATHYROID HORMONE
     Indication: Blood calcium decreased
     Dosage: 50 INTERNATIONAL UNIT, QD
     Route: 065
     Dates: start: 201905
  6. NATPARA (PARATHYROID HORMONE) [Suspect]
     Active Substance: PARATHYROID HORMONE
     Indication: Blood calcium decreased
     Dosage: 50 INTERNATIONAL UNIT, QD
     Route: 065
     Dates: start: 201905

REACTIONS (4)
  - Blood calcium decreased [Unknown]
  - Hospitalisation [Unknown]
  - Recalled product [Unknown]
  - Product storage error [Unknown]

NARRATIVE: CASE EVENT DATE: 20211029
